FAERS Safety Report 9289481 (Version 2)
Quarter: 2013Q2

REPORT INFORMATION
  Report Type: Report from Study
  Country: US (occurrence: US)
  Receive Date: 20130514
  Receipt Date: 20130514
  Transmission Date: 20140414
  Serious: Yes (Other)
  Sender: FDA-Public Use
  Company Number: US-BRISTOL-MYERS SQUIBB COMPANY-12573796

PATIENT
  Age: 40 Year
  Sex: Female

DRUGS (2)
  1. ARIPIPRAZOLE IM DEPOT [Suspect]
     Indication: DRUG LEVEL
     Route: 030
     Dates: start: 20040401, end: 20040401
  2. PLACEBO [Suspect]

REACTIONS (1)
  - Neutropenia [Recovered/Resolved]
